FAERS Safety Report 8756443 (Version 3)
Quarter: 2014Q3

REPORT INFORMATION
  Report Type: Spontaneous
  Country: JP (occurrence: None)
  Receive Date: 20120814
  Receipt Date: 20140814
  Transmission Date: 20150326
  Serious: Yes (Hospitalization, Other)
  Sender: FDA-Public Use
  Company Number: 2010JP007509

PATIENT
  Age: 36 Year
  Sex: Male
  Weight: 75 kg

DRUGS (14)
  1. OLMETEC (OLMESARTAN MEDOXOMIL) [Concomitant]
     Active Substance: OLMESARTAN MEDOXOMIL
  2. BLOSTAR M (FAMOTIDINE) [Concomitant]
  3. PREDNISOLONE. [Concomitant]
     Active Substance: PREDNISOLONE
  4. WARFARIN [Concomitant]
     Active Substance: WARFARIN
  5. PURSENNID (SENNOSIDE A+B) [Concomitant]
  6. TAKEPRON (LANSOPRAZOLE) [Concomitant]
  7. PROGRAF [Suspect]
     Active Substance: TACROLIMUS\TACROLIMUS ANHYDROUS
     Indication: LUPUS NEPHRITIS
     Route: 048
     Dates: start: 20090602, end: 20100721
  8. CRAVIT (LEVOFLOXACIN) [Concomitant]
  9. ACTONEL (RISEDRONATE SODIUM) [Concomitant]
  10. PREDONINE (PREDNISOLONE SODIUM SUCCINATE) [Concomitant]
  11. BENIDIPINE HYDROCHLORIDE [Concomitant]
     Active Substance: BENIDIPINE HYDROCHLORIDE
  12. OMEPRAZOLE. [Concomitant]
     Active Substance: OMEPRAZOLE
  13. PACETCOOL (CEFOTIAM HYDROCHLORIDE) [Concomitant]
  14. ARTIST (CARVEDILOL) [Concomitant]

REACTIONS (7)
  - Hypertension [None]
  - Left ventricular hypertrophy [None]
  - Lupus enteritis [None]
  - Panniculitis [None]
  - Mesenteric panniculitis [None]
  - Constipation [None]
  - Proctitis [None]

NARRATIVE: CASE EVENT DATE: 20100224
